FAERS Safety Report 6496946-3 (Version None)
Quarter: 2009Q4

REPORT INFORMATION
  Report Type: 
  Country: None (occurrence: None)
  Receive Date: 20091215
  Receipt Date: 20090223
  Transmission Date: 20100525
  Serious: No
  Sender: FDA-Public Use
  Company Number: A0753062A

PATIENT
  Age: 74 Year
  Sex: Male

DRUGS (2)
  1. AVODART [Suspect]
     Indication: BENIGN PROSTATIC HYPERPLASIA
     Dosage: .5MG PER DAY
     Route: 048
     Dates: start: 20061001, end: 20081019
  2. NO CONCURRENT MEDICATION [Concomitant]

REACTIONS (5)
  - HYPERSENSITIVITY [None]
  - PROSTATIC SPECIFIC ANTIGEN INCREASED [None]
  - PRURITUS [None]
  - RASH [None]
  - RASH PRURITIC [None]
